FAERS Safety Report 15653913 (Version 1)
Quarter: 2018Q4

REPORT INFORMATION
  Report Type: Spontaneous
  Country: US (occurrence: US)
  Receive Date: 20181125
  Receipt Date: 20181125
  Transmission Date: 20190205
  Serious: Yes (Other)
  Sender: FDA-Public Use
  Company Number: US-PRINSTON PHARMACEUTICAL INC.-2018PRN01597

PATIENT
  Age: 67 Year
  Sex: Male

DRUGS (5)
  1. TRAZODONE [Suspect]
     Active Substance: TRAZODONE HYDROCHLORIDE
     Dosage: 300 MG, 1X/DAY
     Route: 065
  2. ESCITALOPRAM [Suspect]
     Active Substance: ESCITALOPRAM OXALATE
     Dosage: 20 MG, 1X/DAY
     Route: 065
  3. LINEZOLID. [Suspect]
     Active Substance: LINEZOLID
     Indication: STAPHYLOCOCCAL INFECTION
     Route: 065
  4. TRAZODONE [Suspect]
     Active Substance: TRAZODONE HYDROCHLORIDE
     Dosage: 150 UNK
     Route: 065
  5. CLONAZEPAM. [Suspect]
     Active Substance: CLONAZEPAM
     Route: 065

REACTIONS (2)
  - Serotonin syndrome [Recovered/Resolved]
  - Drug interaction [Recovered/Resolved]
